FAERS Safety Report 19279874 (Version 1)
Quarter: 2021Q2

REPORT INFORMATION
  Report Type: Spontaneous
  Country: CA (occurrence: CA)
  Receive Date: 20210520
  Receipt Date: 20210520
  Transmission Date: 20210717
  Serious: Yes (Hospitalization, Other)
  Sender: FDA-Public Use
  Company Number: CA-TEVA-2021-CA-1913068

PATIENT
  Age: 74 Year
  Sex: Male
  Weight: 97 kg

DRUGS (3)
  1. VALSARTAN. [Suspect]
     Active Substance: VALSARTAN
     Indication: ACUTE MYOCARDIAL INFARCTION
     Route: 048
  2. CLOPIDOGREL BISULFATE. [Suspect]
     Active Substance: CLOPIDOGREL BISULFATE
     Route: 065
  3. RAMIPRIL. [Suspect]
     Active Substance: RAMIPRIL
     Indication: ACUTE MYOCARDIAL INFARCTION
     Route: 048

REACTIONS (1)
  - Acute myocardial infarction [Recovered/Resolved]
